FAERS Safety Report 9289894 (Version 1)
Quarter: 2013Q2

REPORT INFORMATION
  Report Type: Report from Study
  Country: IL (occurrence: IL)
  Receive Date: 20130515
  Receipt Date: 20130515
  Transmission Date: 20140414
  Serious: Yes (Hospitalization)
  Sender: FDA-Public Use
  Company Number: PHHY2013IL047541

PATIENT
  Age: 88 Year
  Sex: Female

DRUGS (1)
  1. SANDOSTATIN LAR [Suspect]
     Indication: CARCINOID TUMOUR
     Dosage: 40 MG, Q4 W
     Dates: start: 20100201, end: 20130415

REACTIONS (2)
  - Fall [Unknown]
  - Femoral neck fracture [Unknown]
